FAERS Safety Report 5733967-X (Version None)
Quarter: 2008Q2

REPORT INFORMATION
  Report Type: 
  Country: None (occurrence: None)
  Receive Date: 20080509
  Receipt Date: 20071128
  Transmission Date: 20081010
  Serious: No
  Sender: FDA-Public Use
  Company Number: US-BOEHRINGER INGELHEIM GMBH, GERMANY-2006-BP-07164BP

PATIENT
  Sex: Female
  Weight: 69 kg

DRUGS (18)
  1. MIRAPEX [Suspect]
     Indication: EXTRAPYRAMIDAL DISORDER
     Route: 048
     Dates: start: 20020128, end: 20040427
  2. MIRAPEX [Suspect]
     Indication: PARKINSON'S DISEASE
  3. GINKGO [Concomitant]
  4. MAGNESIUM [Concomitant]
  5. ASPIRIN [Concomitant]
  6. ZOLOFT [Concomitant]
     Indication: ANXIETY
     Route: 048
     Dates: start: 20020328, end: 20030904
  7. ZOLOFT [Concomitant]
     Indication: DEPRESSION
  8. SINEMET [Concomitant]
     Indication: PARKINSON'S DISEASE
     Route: 048
     Dates: start: 20040520
  9. PROVIGIL [Concomitant]
     Indication: PARKINSON'S DISEASE
     Dates: start: 20040520
  10. LEXAPRO [Concomitant]
     Dates: start: 20031120, end: 20040424
  11. MULTI-VITAMIN [Concomitant]
  12. VITAMIN E [Concomitant]
  13. HYDROCHLOROTHIAZIDE [Concomitant]
     Indication: OEDEMA
     Route: 048
     Dates: start: 20030411
  14. ZAROXOLYN [Concomitant]
     Indication: OEDEMA
     Dates: start: 20030617
  15. EFFEXOR [Concomitant]
     Route: 048
     Dates: start: 20031215
  16. KLOR-CON [Concomitant]
     Indication: MINERAL SUPPLEMENTATION
     Dates: start: 20030806
  17. CARBIDOPA AND LEVODOPA [Concomitant]
  18. RALOXIFENE HCL [Concomitant]

REACTIONS (21)
  - ABDOMINAL DISCOMFORT [None]
  - ARTHRALGIA [None]
  - BRONCHITIS [None]
  - CERUMEN IMPACTION [None]
  - DECREASED APPETITE [None]
  - EMOTIONAL DISTRESS [None]
  - GRAVITATIONAL OEDEMA [None]
  - HYPERPHAGIA [None]
  - IMPAIRED DRIVING ABILITY [None]
  - MENTAL IMPAIRMENT [None]
  - MUSCULOSKELETAL STIFFNESS [None]
  - NECK PAIN [None]
  - OBSESSIVE-COMPULSIVE DISORDER [None]
  - PATHOLOGICAL GAMBLING [None]
  - RHINITIS [None]
  - SINUSITIS [None]
  - SLEEP TERROR [None]
  - SNORING [None]
  - SOMNOLENCE [None]
  - WEIGHT DECREASED [None]
  - WEIGHT INCREASED [None]
